FAERS Safety Report 8024619-4 (Version None)
Quarter: 2012Q1

REPORT INFORMATION
  Report Type: 
  Country: None (occurrence: None)
  Receive Date: 20120103
  Receipt Date: 20111219
  Transmission Date: 20120608
  Serious: Yes (Other)
  Sender: FDA-Public Use
  Company Number: 2011-474

PATIENT
  Age: 75 Year
  Sex: Female

DRUGS (3)
  1. NAROPIN [Suspect]
     Indication: PAIN
     Dosage: UNK MG, ONCE/HOUR, INTRATHECAL
     Route: 037
  2. PRIALT [Suspect]
     Indication: PAIN
     Dosage: 0.17 UG, ONCE/HOUR, INTRATHECAL
     Route: 037
     Dates: start: 20110708, end: 20110817
  3. MORPHINE SULFATE [Suspect]
     Indication: PAIN
     Dosage: UNK MG, ONCE/HOUR, INTRATHECAL
     Route: 037

REACTIONS (3)
  - DELIRIUM [None]
  - ABNORMAL BEHAVIOUR [None]
  - MANIA [None]
